FAERS Safety Report 20632786 (Version 4)
Quarter: 2022Q3

REPORT INFORMATION
  Report Type: Spontaneous
  Country: JP (occurrence: JP)
  Receive Date: 20220324
  Receipt Date: 20220809
  Transmission Date: 20221027
  Serious: No
  Sender: FDA-Public Use
  Company Number: JP-GLAXOSMITHKLINE-JP2022JPN052974

PATIENT

DRUGS (8)
  1. SOTROVIMAB [Suspect]
     Active Substance: SOTROVIMAB
     Indication: COVID-19
     Dosage: 500 MG/DAY
     Route: 042
     Dates: start: 20220315, end: 20220315
  2. SODIUM FERROUS CITRATE [Suspect]
     Active Substance: SODIUM FERROUS CITRATE
     Indication: Anaemia
     Dosage: 100 MG/DAY
     Route: 048
     Dates: start: 20220305, end: 20220314
  3. SODIUM FERROUS CITRATE [Suspect]
     Active Substance: SODIUM FERROUS CITRATE
     Indication: Anaemia
     Dosage: 100 MG/DAY
     Route: 048
     Dates: start: 20220314, end: 20220323
  4. SODIUM FERROUS CITRATE [Suspect]
     Active Substance: SODIUM FERROUS CITRATE
     Dosage: 100 MG/DAY
     Route: 048
     Dates: start: 20220405, end: 20220418
  5. SODIUM FERROUS CITRATE [Suspect]
     Active Substance: SODIUM FERROUS CITRATE
     Dosage: 100 MG/DAY
     Route: 048
     Dates: start: 20220524, end: 20220530
  6. DIMEMORFAN PHOSPHATE [Suspect]
     Active Substance: DIMEMORFAN PHOSPHATE
     Indication: Cough
     Dosage: 300 MG/DAY
     Route: 048
     Dates: start: 20220314, end: 20220317
  7. MAGNESIUM OXIDE [Suspect]
     Active Substance: MAGNESIUM OXIDE
     Indication: Constipation
     Dosage: 990 MG/DAY
     Route: 048
     Dates: start: 20220317, end: 20220320
  8. HERBALS [Suspect]
     Active Substance: HERBALS
     Indication: Oedema
     Dosage: 8.1 G/DAY
     Route: 048
     Dates: start: 20220524, end: 20220530

REACTIONS (1)
  - Exposure during pregnancy [Unknown]
